FAERS Safety Report 7874619-X (Version None)
Quarter: 2011Q4

REPORT INFORMATION
  Report Type: 
  Country: None (occurrence: None)
  Receive Date: 20111031
  Receipt Date: 20111027
  Transmission Date: 20120403
  Serious: Yes (Other)
  Sender: FDA-Public Use
  Company Number: IT-PFIZER INC-2011262453

PATIENT
  Age: 72 Year
  Sex: Female

DRUGS (1)
  1. MEDROL [Suspect]
     Dosage: 44.4 MG, TOTAL DOSE
     Route: 048
     Dates: start: 20110922, end: 20110922

REACTIONS (2)
  - ANGIOEDEMA [None]
  - ERYTHEMA [None]
